FAERS Safety Report 6024235-X (Version None)
Quarter: 2008Q4

REPORT INFORMATION
  Report Type: 
  Country: None (occurrence: None)
  Receive Date: 20081229
  Receipt Date: 20081212
  Transmission Date: 20090506
  Serious: Yes (Other)
  Sender: FDA-Public Use
  Company Number: 2008-188425-NL

PATIENT
  Age: 23 Year
  Sex: Female
  Weight: 83.5 kg

DRUGS (2)
  1. IMPLANON [Suspect]
     Indication: CONTRACEPTION
     Dosage: SUBDERMAL
     Route: 059
     Dates: start: 20080130
  2. ALBUTEROL [Concomitant]

REACTIONS (4)
  - HEADACHE [None]
  - NECK PAIN [None]
  - PAPILLOEDEMA [None]
  - PHOTOPSIA [None]
